FAERS Safety Report 5786154-3 (Version None)
Quarter: 2008Q2

REPORT INFORMATION
  Report Type: 
  Country: None (occurrence: None)
  Receive Date: 20080624
  Receipt Date: 20080618
  Transmission Date: 20081010
  Serious: Yes (Other)
  Sender: FDA-Public Use
  Company Number: A0730984A

PATIENT
  Age: 71 Year
  Sex: Female

DRUGS (3)
  1. PAROXETINE HCL [Suspect]
     Dosage: 20MG PER DAY
     Route: 048
     Dates: start: 20080421, end: 20080512
  2. HYDROCHLOROTHIAZIDE [Concomitant]
     Dosage: 25MG IN THE MORNING
  3. ACCUPRIL [Concomitant]
     Dosage: 40MG PER DAY

REACTIONS (3)
  - HALLUCINATION [None]
  - NIGHTMARE [None]
  - PHARMACEUTICAL PRODUCT COMPLAINT [None]
